FAERS Safety Report 4730083-0 (Version None)
Quarter: 2005Q3

REPORT INFORMATION
  Report Type: 
  Country: None (occurrence: None)
  Receive Date: 20050729
  Receipt Date: 20050729
  Transmission Date: 20060218
  Serious: Yes (Hospitalization)
  Sender: FDA-Public Use
  Company Number: None

PATIENT
  Sex: Female
  Weight: 60.8 kg

DRUGS (6)
  1. VALSARTAN [Suspect]
     Indication: HYPERTENSION
  2. METOLAZONE [Suspect]
     Indication: CARDIAC FAILURE CONGESTIVE
  3. NPH INSULIN [Concomitant]
  4. ASPIRIN [Concomitant]
  5. FUROSEMIDE [Concomitant]
  6. ATENOLOL [Concomitant]

REACTIONS (1)
  - JAUNDICE CHOLESTATIC [None]
